FAERS Safety Report 9259569 (Version 3)
Quarter: 2013Q4

REPORT INFORMATION
  Report Type: Spontaneous
  Country: US (occurrence: US)
  Receive Date: 20130429
  Receipt Date: 20131223
  Transmission Date: 20140711
  Serious: Yes (Hospitalization, Disabling, Other)
  Sender: FDA-Public Use
  Company Number: US-ASTRAZENECA-2013SE27633

PATIENT
  Age: 58 Year
  Sex: Female
  Weight: 80.7 kg

DRUGS (10)
  1. NEXIUM [Suspect]
     Indication: GASTRIC DISORDER
     Route: 048
  2. NEXIUM [Suspect]
     Indication: GASTRIC DISORDER
     Route: 048
     Dates: start: 20101215
  3. HYDROCODONE [Concomitant]
     Dates: start: 20080507
  4. CARISOPRODOL [Concomitant]
     Dates: start: 20080507
  5. ALPRAZOLAM [Concomitant]
     Dates: start: 20080507
  6. TRAZODONE [Concomitant]
     Dates: start: 20080507
  7. FUROSEMIDE [Concomitant]
     Dates: start: 20080507
  8. PLAVIX [Concomitant]
     Dates: start: 20080507
  9. SIMVASTATIN [Concomitant]
     Dates: start: 20110415
  10. OMEPRAZOLE [Concomitant]

REACTIONS (17)
  - Type 2 diabetes mellitus [Unknown]
  - Abdominal distension [Unknown]
  - Chronic obstructive pulmonary disease [Unknown]
  - Diabetes mellitus inadequate control [Unknown]
  - Pancreatitis [Unknown]
  - Osteoporosis [Unknown]
  - Bone disorder [Unknown]
  - Multiple fractures [Unknown]
  - Bipolar disorder [Unknown]
  - Calcium deficiency [Unknown]
  - Emotional distress [Unknown]
  - Foot fracture [Unknown]
  - Spinal osteoarthritis [Unknown]
  - Osteoarthritis [Unknown]
  - Fall [Unknown]
  - Ligament sprain [Unknown]
  - Depression [Unknown]
